FAERS Safety Report 11634419 (Version 1)
Quarter: 2015Q4

REPORT INFORMATION
  Report Type: Spontaneous
  Country: IT (occurrence: IT)
  Receive Date: 20151015
  Receipt Date: 20151015
  Transmission Date: 20160304
  Serious: Yes (Hospitalization)
  Sender: FDA-Public Use
  Company Number: IT-BAYER-2015-441769

PATIENT
  Age: 72 Year
  Sex: Female

DRUGS (16)
  1. CALCIUM CARBONATE. [Concomitant]
     Active Substance: CALCIUM CARBONATE
     Route: 048
  2. LANSOX [Concomitant]
     Active Substance: LANSOPRAZOLE
     Route: 048
  3. TAPAZOLE [Concomitant]
     Active Substance: METHIMAZOLE
     Route: 048
  4. LAEVOLAC [Concomitant]
     Active Substance: LACTULOSE
  5. APIDRA [Concomitant]
     Active Substance: INSULIN GLULISINE
     Dosage: 15 IU, QD
     Route: 058
  6. CALCITRIOL. [Concomitant]
     Active Substance: CALCITRIOL
     Route: 048
  7. HALCION [Concomitant]
     Active Substance: TRIAZOLAM
     Route: 048
  8. CLEXANE [Concomitant]
     Active Substance: ENOXAPARIN SODIUM
     Route: 058
  9. SERETIDE [Concomitant]
     Active Substance: FLUTICASONE FUROATE\SALMETEROL XINAFOATE
     Route: 055
  10. LANTUS [Concomitant]
     Active Substance: INSULIN GLARGINE
     Dosage: 5 IU, QD
     Route: 058
  11. ZYLORIC [Concomitant]
     Active Substance: ALLOPURINOL
     Route: 048
  12. KANRENOL [Concomitant]
     Active Substance: CANRENOATE POTASSIUM
     Dosage: 0.5 DF, QD
     Route: 048
  13. ISOPTIN [Concomitant]
     Active Substance: VERAPAMIL HYDROCHLORIDE
     Dosage: 3 DF, QD
     Route: 048
  14. MEDROL [Concomitant]
     Active Substance: METHYLPREDNISOLONE
     Dosage: 0.5 DF, QD
     Route: 048
  15. CARDIOASPIRIN [Suspect]
     Active Substance: ASPIRIN
     Indication: THROMBOSIS PROPHYLAXIS
     Dosage: 100 MG, QD
     Route: 048
     Dates: start: 20150101, end: 20150918
  16. LASIX [Concomitant]
     Active Substance: FUROSEMIDE
     Route: 048

REACTIONS (3)
  - Rectal haemorrhage [Unknown]
  - Hypotension [Unknown]
  - Nausea [Unknown]

NARRATIVE: CASE EVENT DATE: 20150918
